FAERS Safety Report 24648699 (Version 4)
Quarter: 2024Q4

REPORT INFORMATION
  Report Type: Spontaneous
  Country: IT (occurrence: IT)
  Receive Date: 20241121
  Receipt Date: 20241224
  Transmission Date: 20250114
  Serious: Yes (Other)
  Sender: GILEAD
  Company Number: IT-GILEAD-2024-0694068

PATIENT
  Age: 67 Year
  Sex: Male

DRUGS (1)
  1. EPCLUSA [Suspect]
     Active Substance: SOFOSBUVIR\VELPATASVIR
     Indication: Chronic hepatitis C
     Dosage: UNK
     Route: 065
     Dates: start: 2023

REACTIONS (2)
  - Hepatitis C [Unknown]
  - Treatment failure [Unknown]
